FAERS Safety Report 4912917-X (Version None)
Quarter: 2006Q1

REPORT INFORMATION
  Report Type: 
  Country: None (occurrence: None)
  Receive Date: 20060210
  Receipt Date: 20060131
  Transmission Date: 20060701
  Serious: Yes (Other)
  Sender: FDA-Public Use
  Company Number: CHNY2006CA00663

PATIENT
  Age: 28 Year
  Sex: Female

DRUGS (1)
  1. REXALL TRANSDERMAL NICOTINE PATCH (NCH)(NICOTINE) TRANS-THERAPEUTIC-SY [Suspect]
     Indication: SMOKING CESSATION THERAPY
     Dosage: 21 MG, QD, TRANSDERMAL
     Route: 062
     Dates: start: 20060130, end: 20060131

REACTIONS (13)
  - BURNING SENSATION [None]
  - DIARRHOEA [None]
  - DISCOMFORT [None]
  - FALL [None]
  - HEAD INJURY [None]
  - HYPERSENSITIVITY [None]
  - JOINT INJURY [None]
  - LIMB INJURY [None]
  - MUSCULOSKELETAL DISCOMFORT [None]
  - NAUSEA [None]
  - REACTION TO DRUG EXCIPIENTS [None]
  - SYNCOPE [None]
  - VOMITING [None]
